FAERS Safety Report 5025123-8 (Version None)
Quarter: 2006Q2

REPORT INFORMATION
  Report Type: 
  Country: None (occurrence: None)
  Receive Date: 20060426
  Receipt Date: 20060124
  Transmission Date: 20061013
  Serious: Yes (Other)
  Sender: FDA-Public Use
  Company Number: 2006012749

PATIENT
  Age: 74 Year
  Sex: Male
  Weight: 68.9467 kg

DRUGS (10)
  1. LYRICA [Suspect]
     Indication: RADICULAR PAIN
     Dosage: (50 MG) ORAL
     Route: 048
     Dates: start: 20060118, end: 20060122
  2. FOSAMAX [Concomitant]
  3. PREDNISONE TAB [Concomitant]
  4. ALLOPURINOL [Concomitant]
  5. TRAZODONE HCL [Concomitant]
  6. TOPROL-XL [Concomitant]
  7. ASPIRIN [Concomitant]
  8. AMBIEN (ZOLIPIDEM TARTRATE) [Concomitant]
  9. PERCOCET (OXYCODONE HYDRPCHLORIDE, PARACETAMOL) [Concomitant]
  10. OXYCODONE (OXYCODONE) [Concomitant]

REACTIONS (2)
  - ARTHRALGIA [None]
  - JOINT SWELLING [None]
